FAERS Safety Report 5578382-7 (Version None)
Quarter: 2007Q4

REPORT INFORMATION
  Report Type: 
  Country: None (occurrence: None)
  Receive Date: 20071231
  Receipt Date: 20071227
  Transmission Date: 20080405
  Serious: Yes (Other)
  Sender: FDA-Public Use
  Company Number: JP-PFIZER INC-2007108278

PATIENT
  Age: 10 Year
  Sex: Female

DRUGS (1)
  1. SOLU-MEDROL [Suspect]
     Dosage: DAILY DOSE:250MG
     Route: 042

REACTIONS (6)
  - ALANINE AMINOTRANSFERASE DECREASED [None]
  - ASPARTATE AMINOTRANSFERASE DECREASED [None]
  - LYMPH NODE PAIN [None]
  - LYMPHADENOPATHY [None]
  - MYALGIA [None]
  - PROTEIN TOTAL DECREASED [None]
